FAERS Safety Report 6989709-3 (Version None)
Quarter: 2010Q3

REPORT INFORMATION
  Report Type: 
  Country: None (occurrence: None)
  Receive Date: 20100916
  Receipt Date: 20100225
  Transmission Date: 20110219
  Serious: Yes (Other)
  Sender: FDA-Public Use
  Company Number: US-PFIZER INC-2010026731

PATIENT
  Sex: Male
  Weight: 86.182 kg

DRUGS (6)
  1. LYRICA [Suspect]
     Indication: FIBROMYALGIA
     Dosage: 150 MG, 2X/DAY
  2. MIRAPEX [Concomitant]
     Indication: RESTLESS LEGS SYNDROME
     Dosage: UNK
  3. WELLBUTRIN XL [Concomitant]
     Dosage: 450 MG, UNK
  4. ZOLOFT [Concomitant]
     Dosage: 200 MG, UNK
  5. TRAMADOL [Concomitant]
     Dosage: 50 MG, UNK
  6. EXTRA STRENGTH TYLENOL [Concomitant]
     Dosage: UNK

REACTIONS (12)
  - APHASIA [None]
  - BEDRIDDEN [None]
  - DIZZINESS [None]
  - DRY MOUTH [None]
  - FATIGUE [None]
  - FIBROMYALGIA [None]
  - GAIT DISTURBANCE [None]
  - JOINT SWELLING [None]
  - OEDEMA PERIPHERAL [None]
  - PYREXIA [None]
  - VISION BLURRED [None]
  - WEIGHT INCREASED [None]
